FAERS Safety Report 7298554-3 (Version None)
Quarter: 2011Q1

REPORT INFORMATION
  Report Type: 
  Country: None (occurrence: None)
  Receive Date: 20110207
  Receipt Date: 20110125
  Transmission Date: 20110831
  Serious: Yes (Death, Hospitalization, Other)
  Sender: FDA-Public Use
  Company Number: KADN20110009

PATIENT
  Age: 50 Year
  Sex: Female

DRUGS (7)
  1. MORPHINE [Suspect]
     Indication: PRODUCT USED FOR UNKNOWN INDICATION
     Dosage: PER ORAL
     Route: 048
     Dates: end: 20090101
  2. MEPROBAMATE [Concomitant]
  3. ACETAMINOPHEN [Suspect]
     Indication: PRODUCT USED FOR UNKNOWN INDICATION
     Dosage: PER ORAL
     Route: 048
     Dates: end: 20090101
  4. CAFFEINE [Concomitant]
  5. NICOTINE [Concomitant]
  6. SALICYLATE [Concomitant]
  7. CARISOPRODOL [Suspect]
     Indication: PRODUCT USED FOR UNKNOWN INDICATION
     Dosage: PER ORAL
     Route: 048
     Dates: end: 20090101

REACTIONS (16)
  - COMPLETED SUICIDE [None]
  - BRAIN OEDEMA [None]
  - UNRESPONSIVE TO STIMULI [None]
  - MENTAL STATUS CHANGES [None]
  - DRUG ABUSE [None]
  - BLOOD PH DECREASED [None]
  - HEART RATE INCREASED [None]
  - BLOOD GLUCOSE DECREASED [None]
  - BLOOD PRESSURE DIASTOLIC DECREASED [None]
  - ASPARTATE AMINOTRANSFERASE INCREASED [None]
  - ALANINE AMINOTRANSFERASE INCREASED [None]
  - LETHARGY [None]
  - CARBON DIOXIDE DECREASED [None]
  - BLOOD LACTIC ACID INCREASED [None]
  - PROTHROMBIN TIME PROLONGED [None]
  - BASE EXCESS DECREASED [None]
